FAERS Safety Report 5097375-X (Version None)
Quarter: 2006Q3

REPORT INFORMATION
  Report Type: 
  Country: None (occurrence: None)
  Receive Date: 20060901
  Receipt Date: 20060821
  Transmission Date: 20061208
  Serious: Yes (Death)
  Sender: FDA-Public Use
  Company Number: 2006SI007842

PATIENT
  Age: 30 Year
  Sex: Male

DRUGS (2)
  1. FENTANYL TRANSDERMAL SYSTEM [Suspect]
     Dosage: TDER
     Dates: end: 20050101
  2. ALCOHOL /00002101/ [Suspect]
     Dosage: PO
     Route: 048
     Dates: end: 20050101

REACTIONS (2)
  - INTENTIONAL DRUG MISUSE [None]
  - SELF-MEDICATION [None]
